FAERS Safety Report 13008515 (Version 2)
Quarter: 2017Q1

REPORT INFORMATION
  Report Type: Spontaneous
  Country: US (occurrence: US)
  Receive Date: 20161208
  Receipt Date: 20170210
  Transmission Date: 20170428
  Serious: No
  Sender: FDA-Public Use
  Company Number: US-009507513-1611USA005112

PATIENT
  Age: 21 Year
  Sex: Female
  Weight: 147.39 kg

DRUGS (2)
  1. NEXPLANON [Suspect]
     Active Substance: ETONOGESTREL
     Dosage: UNK
     Route: 059
  2. NEXPLANON [Suspect]
     Active Substance: ETONOGESTREL
     Dosage: UNK (LEFT ARM)
     Route: 059
     Dates: start: 20160915, end: 20161121

REACTIONS (5)
  - Migration of implanted drug [Recovered/Resolved with Sequelae]
  - Medical device site discomfort [Unknown]
  - Device kink [Recovered/Resolved with Sequelae]
  - Device difficult to use [Recovered/Resolved with Sequelae]
  - Device breakage [Recovered/Resolved with Sequelae]

NARRATIVE: CASE EVENT DATE: 2016
